FAERS Safety Report 4766299-7 (Version None)
Quarter: 2005Q3

REPORT INFORMATION
  Report Type: 
  Country: None (occurrence: None)
  Receive Date: 20050906
  Receipt Date: 20050822
  Transmission Date: 20060218
  Serious: Yes (Death)
  Sender: FDA-Public Use
  Company Number: USA041184091

PATIENT
  Age: 25 Year
  Sex: Male

DRUGS (4)
  1. SYMBYAX [Suspect]
     Indication: BIPOLAR I DISORDER
     Dates: start: 20041025
  2. ZYPREXA [Suspect]
     Indication: BIPOLAR DISORDER
     Dosage: 2.5 MG/1 DAY
     Dates: start: 20041018, end: 20041024
  3. ZOLOFT [Concomitant]
  4. METHADONE HCL [Concomitant]

REACTIONS (12)
  - ALCOHOLISM [None]
  - COMPLETED SUICIDE [None]
  - COUGH [None]
  - DRUG DOSE OMISSION [None]
  - HICCUPS [None]
  - HYPERSOMNIA [None]
  - INCREASED APPETITE [None]
  - LETHARGY [None]
  - OVERDOSE [None]
  - PNEUMONIA ASPIRATION [None]
  - SOMNOLENCE [None]
  - VOMITING [None]
